FAERS Safety Report 4943948-1 (Version None)
Quarter: 2006Q1

REPORT INFORMATION
  Report Type: 
  Country: None (occurrence: None)
  Receive Date: 20060313
  Receipt Date: 20060313
  Transmission Date: 20060701
  Serious: No
  Sender: FDA-Public Use
  Company Number: None

PATIENT
  Age: 75 Year
  Sex: Female
  Weight: 65.7716 kg

DRUGS (2)
  1. ROZEREM [Suspect]
     Indication: DEPRESSION
     Dosage: 8    1 NIGHTLY  PO
     Route: 048
     Dates: start: 20060220, end: 20060222
  2. ROZEREM [Suspect]
     Indication: INSOMNIA
     Dosage: 8    1 NIGHTLY  PO
     Route: 048
     Dates: start: 20060220, end: 20060222

REACTIONS (5)
  - ADVERSE DRUG REACTION [None]
  - DRUG INEFFECTIVE [None]
  - FEELING ABNORMAL [None]
  - HANGOVER [None]
  - SOMNOLENCE [None]
